FAERS Safety Report 7065141-1 (Version None)
Quarter: 2010Q4

REPORT INFORMATION
  Report Type: 
  Country: None (occurrence: None)
  Receive Date: 20101027
  Receipt Date: 20101016
  Transmission Date: 20110411
  Serious: Yes (Disabling, Other)
  Sender: FDA-Public Use
  Company Number: JP-PFIZER INC-2010130741

PATIENT
  Age: 63 Year
  Sex: Male

DRUGS (1)
  1. VFEND [Suspect]
     Indication: ANTIFUNGAL PROPHYLAXIS
     Dosage: 200 MG, 2X/DAY
     Route: 048

REACTIONS (2)
  - BLINDNESS [None]
  - PAPILLOEDEMA [None]
